FAERS Safety Report 10394397 (Version 2)
Quarter: 2014Q3

REPORT INFORMATION
  Report Type: Spontaneous
  Country: US (occurrence: US)
  Receive Date: 20140819
  Receipt Date: 20140929
  Transmission Date: 20150326
  Serious: Yes (Death, Hospitalization, Other)
  Sender: FDA-Public Use
  Company Number: US-B.I. PHARMACEUTICALS,INC./RIDGEFIELD-2014-BI-37642BP

PATIENT
  Age: 74 Year
  Sex: Female
  Weight: 43 kg

DRUGS (1)
  1. PRADAXA [Suspect]
     Active Substance: DABIGATRAN ETEXILATE MESYLATE
     Indication: ATRIAL FIBRILLATION
     Dosage: 300 MG
     Route: 048
     Dates: end: 20110930

REACTIONS (7)
  - Gastrointestinal haemorrhage [Fatal]
  - Splenic rupture [Fatal]
  - Coagulopathy [Unknown]
  - Fall [Recovered/Resolved]
  - Abdominal injury [Unknown]
  - Renal failure acute [Unknown]
  - Haemorrhagic anaemia [Fatal]

NARRATIVE: CASE EVENT DATE: 20110930
